FAERS Safety Report 6356215-9 (Version None)
Quarter: 2009Q3

REPORT INFORMATION
  Report Type: 
  Country: None (occurrence: None)
  Receive Date: 20090911
  Receipt Date: 20090911
  Transmission Date: 20100115
  Serious: Yes (Hospitalization)
  Sender: FDA-Public Use
  Company Number: None

PATIENT
  Age: 84 Year
  Sex: Female
  Weight: 55.7924 kg

DRUGS (1)
  1. CYMBALTA [Suspect]

REACTIONS (4)
  - FALL [None]
  - HEAD INJURY [None]
  - SYNCOPE [None]
  - WOUND HAEMORRHAGE [None]
